FAERS Safety Report 9444311 (Version 1)
Quarter: 2013Q3

REPORT INFORMATION
  Report Type: Spontaneous
  Country: US (occurrence: None)
  Receive Date: 20130806
  Receipt Date: 20130806
  Transmission Date: 20140515
  Serious: Yes (Other)
  Sender: FDA-Public Use
  Company Number: None

PATIENT
  Age: 62 Year
  Sex: Male

DRUGS (8)
  1. ENBREL 50 MG AMGEN/PFIZER [Suspect]
     Indication: RHEUMATOID ARTHRITIS
     Dosage: 50 MG WEEKLY SQ
     Dates: start: 20130212
  2. PROTONIX [Concomitant]
  3. LOVASTATIN [Concomitant]
  4. LISINOPRIL [Concomitant]
  5. FOLIC ACID [Concomitant]
  6. METHOTREXATE [Concomitant]
  7. ASPIRIN [Concomitant]
  8. GLUCOSAMINE [Concomitant]

REACTIONS (1)
  - Neoplasm malignant [None]
